FAERS Safety Report 18345601 (Version 1)
Quarter: 2020Q4

REPORT INFORMATION
  Report Type: Spontaneous
  Country: IT (occurrence: IT)
  Receive Date: 20201005
  Receipt Date: 20201005
  Transmission Date: 20210114
  Serious: Yes (Other)
  Sender: FDA-Public Use
  Company Number: IT-PFIZER INC-2020378020

PATIENT
  Age: 68 Year
  Sex: Male
  Weight: 75 kg

DRUGS (1)
  1. MEDROL [Suspect]
     Active Substance: METHYLPREDNISOLONE
     Indication: PERIARTHRITIS
     Dosage: 16 MG, 1X/DAY
     Route: 048
     Dates: start: 20200905, end: 20200910

REACTIONS (2)
  - Aphonia [Not Recovered/Not Resolved]
  - Oedema mucosal [Unknown]

NARRATIVE: CASE EVENT DATE: 20200909
